FAERS Safety Report 14714113 (Version 1)
Quarter: 2018Q1

REPORT INFORMATION
  Report Type: Spontaneous
  Country: US (occurrence: US)
  Receive Date: 20180330
  Receipt Date: 20180330
  Transmission Date: 20180509
  Serious: Yes (Other)
  Sender: FDA-Public Use
  Company Number: None

PATIENT
  Age: 40 Year
  Sex: Female
  Weight: 81 kg

DRUGS (2)
  1. INJECTAFER [Suspect]
     Active Substance: FERRIC CARBOXYMALTOSE
     Indication: ANAEMIA
     Dosage: ?          OTHER FREQUENCY:ON DAYS 1 AND 8;?
     Route: 042
     Dates: start: 20180327
  2. INJECTAFER 750MG [Concomitant]
     Dates: start: 20180327, end: 20180327

REACTIONS (2)
  - Urticaria [None]
  - Hypersensitivity [None]

NARRATIVE: CASE EVENT DATE: 20180327
